FAERS Safety Report 12369253 (Version 1)
Quarter: 2016Q2

REPORT INFORMATION
  Report Type: Report from Study
  Country: DE (occurrence: DE)
  Receive Date: 20160513
  Receipt Date: 20160513
  Transmission Date: 20160815
  Serious: Yes (Hospitalization, Other)
  Sender: FDA-Public Use
  Company Number: PHHY2016DE033776

PATIENT
  Age: 44 Year
  Sex: Female
  Weight: 125 kg

DRUGS (1)
  1. GILENYA [Suspect]
     Active Substance: FINGOLIMOD HYDROCHLORIDE
     Indication: MULTIPLE SCLEROSIS
     Dosage: 0.5 MG, QD
     Route: 048
     Dates: start: 20140731

REACTIONS (4)
  - Uterine leiomyoma [Recovered/Resolved]
  - Uterine leiomyoma [Unknown]
  - Cervical dysplasia [Recovered/Resolved with Sequelae]
  - Anogenital warts [Not Recovered/Not Resolved]

NARRATIVE: CASE EVENT DATE: 201512
